FAERS Safety Report 19038026 (Version 1)
Quarter: 2021Q1

REPORT INFORMATION
  Report Type: Spontaneous
  Country: FR (occurrence: FR)
  Receive Date: 20210322
  Receipt Date: 20210322
  Transmission Date: 20210420
  Serious: Yes (Hospitalization)
  Sender: FDA-Public Use
  Company Number: FR-AXELLIA-003724

PATIENT
  Age: 58 Year
  Sex: Female
  Weight: 77 kg

DRUGS (15)
  1. DIGOXIN. [Concomitant]
     Active Substance: DIGOXIN
     Dates: start: 20201224, end: 20210114
  2. COLCHICINE. [Concomitant]
     Active Substance: COLCHICINE
     Dates: start: 20210108, end: 20210118
  3. TINZAPARIN [Concomitant]
     Active Substance: TINZAPARIN
  4. PANTOPRAZOLE [Concomitant]
     Active Substance: PANTOPRAZOLE
  5. BISOPROLOL [Concomitant]
     Active Substance: BISOPROLOL
     Dates: start: 20210108
  6. CEFOTAXIME [Concomitant]
     Active Substance: CEFOTAXIME SODIUM
     Dates: start: 20210114, end: 20210115
  7. METOCLOPRAMIDE. [Concomitant]
     Active Substance: METOCLOPRAMIDE
  8. DAPTOMYCIN. [Concomitant]
     Active Substance: DAPTOMYCIN
     Route: 042
     Dates: start: 20210122, end: 20210201
  9. LEVOTHYROX [Concomitant]
     Active Substance: LEVOTHYROXINE
     Dosage: 25 MICROGRAMS, SCORED TABLET
     Dates: start: 20201224
  10. LANSOPRAZOLE. [Concomitant]
     Active Substance: LANSOPRAZOLE
  11. XANAX [Concomitant]
     Active Substance: ALPRAZOLAM
     Dosage: 0.25 MG, SCORED TABLET
  12. GENTAMICIN. [Concomitant]
     Active Substance: GENTAMICIN
     Dates: start: 20210114, end: 20210115
  13. VANCOMYCIN [Suspect]
     Active Substance: VANCOMYCIN
     Indication: STAPHYLOCOCCAL SEPSIS
     Route: 042
     Dates: start: 20210115, end: 20210121
  14. SPASFON [Concomitant]
  15. FUROSEMIDE. [Concomitant]
     Active Substance: FUROSEMIDE
     Dates: start: 20210122

REACTIONS (2)
  - Acute kidney injury [Recovering/Resolving]
  - Red man syndrome [Recovered/Resolved]

NARRATIVE: CASE EVENT DATE: 20210115
